FAERS Safety Report 5963201-7 (Version None)
Quarter: 2008Q4

REPORT INFORMATION
  Report Type: 
  Country: None (occurrence: None)
  Receive Date: 20081119
  Receipt Date: 20080801
  Transmission Date: 20090506
  Serious: No
  Sender: FDA-Public Use
  Company Number: WAES 0808USA00772

PATIENT
  Age: 66 Year
  Sex: Female

DRUGS (6)
  1. JANUVIA [Suspect]
     Indication: TYPE 2 DIABETES MELLITUS
     Dosage: 100 MG/PO
     Route: 048
     Dates: start: 20080701, end: 20080101
  2. NEXIUM [Concomitant]
  3. PROAIR HFA [Concomitant]
  4. GLIPIZIDE [Concomitant]
  5. METFORMIN HCL [Concomitant]
  6. METOPROLOL TARTRATE [Concomitant]

REACTIONS (6)
  - ARTHRALGIA [None]
  - FACE OEDEMA [None]
  - FLUID RETENTION [None]
  - HOT FLUSH [None]
  - OEDEMA PERIPHERAL [None]
  - URINE OUTPUT DECREASED [None]
